FAERS Safety Report 7540524-1 (Version None)
Quarter: 2011Q2

REPORT INFORMATION
  Report Type: 
  Country: None (occurrence: None)
  Receive Date: 20110610
  Receipt Date: 20110603
  Transmission Date: 20111010
  Serious: Yes (Other)
  Sender: FDA-Public Use
  Company Number: A0930957A

PATIENT
  Sex: Male

DRUGS (7)
  1. LASIX [Concomitant]
  2. AVODART [Concomitant]
  3. ASPIRIN [Concomitant]
  4. ENALAPRIL MALEATE [Concomitant]
  5. ZOCOR [Concomitant]
  6. COREG CR [Suspect]
     Route: 048
     Dates: start: 20090101
  7. MULTI-VITAMIN [Concomitant]

REACTIONS (4)
  - HEART VALVE INCOMPETENCE [None]
  - VISION BLURRED [None]
  - ASTHENIA [None]
  - OEDEMA PERIPHERAL [None]
